FAERS Safety Report 19167212 (Version 1)
Quarter: 2021Q2

REPORT INFORMATION
  Report Type: Spontaneous
  Country: JP (occurrence: JP)
  Receive Date: 20210422
  Receipt Date: 20210422
  Transmission Date: 20210717
  Serious: Yes (Hospitalization, Other)
  Sender: FDA-Public Use
  Company Number: NVSJ2021JP005675

PATIENT
  Age: 80 Year
  Sex: Male

DRUGS (1)
  1. CYCLOSPORINE. [Suspect]
     Active Substance: CYCLOSPORINE
     Indication: MYELODYSPLASTIC SYNDROME
     Dosage: 300 MG
     Route: 065

REACTIONS (10)
  - Renal impairment [Unknown]
  - Inflammation [Unknown]
  - Product use in unapproved indication [Unknown]
  - Malaise [Unknown]
  - Anaemia [Unknown]
  - Pyrexia [Unknown]
  - Platelet count increased [Unknown]
  - Skin mass [Unknown]
  - Disseminated aspergillosis [Unknown]
  - White blood cell count increased [Unknown]

NARRATIVE: CASE EVENT DATE: 201806
